FAERS Safety Report 23339187 (Version 1)
Quarter: 2023Q4

REPORT INFORMATION
  Report Type: Spontaneous
  Country: AT (occurrence: AT)
  Receive Date: 20231226
  Receipt Date: 20231226
  Transmission Date: 20240109
  Serious: Yes (Hospitalization)
  Sender: FDA-Public Use
  Company Number: AT-PFIZER INC-PV202300199503

PATIENT
  Age: 33 Year
  Sex: Female
  Weight: 87 kg

DRUGS (3)
  1. IRINOTECAN [Suspect]
     Active Substance: IRINOTECAN
     Indication: Ganglioneuroblastoma
  2. TEMOZOLOMIDE [Suspect]
     Active Substance: TEMOZOLOMIDE
     Indication: Ganglioneuroblastoma
  3. LORLATINIB [Suspect]
     Active Substance: LORLATINIB
     Indication: Ganglioneuroblastoma
     Dosage: 100 MG

REACTIONS (3)
  - Colitis [Recovered/Resolved]
  - Depression [Recovered/Resolved]
  - Off label use [Unknown]
